FAERS Safety Report 12531941 (Version 1)
Quarter: 2016Q3

REPORT INFORMATION
  Report Type: Report from Study
  Country: TR (occurrence: TR)
  Receive Date: 20160706
  Receipt Date: 20160706
  Transmission Date: 20161109
  Serious: Yes (Hospitalization)
  Sender: FDA-Public Use
  Company Number: TR-CELGENEUS-TUR-2016066545

PATIENT
  Age: 49 Year
  Sex: Female
  Weight: 87.3 kg

DRUGS (14)
  1. BORTEZOMIB [Suspect]
     Active Substance: BORTEZOMIB
     Indication: PLASMA CELL MYELOMA
     Route: 058
     Dates: start: 20160209, end: 20160219
  2. CC-4047 [Suspect]
     Active Substance: POMALIDOMIDE
     Indication: PLASMA CELL MYELOMA
     Route: 048
     Dates: start: 20160614, end: 20160620
  3. CC-4047 [Suspect]
     Active Substance: POMALIDOMIDE
     Indication: SYSTEMIC SCLEROSIS PULMONARY
  4. CALS-D3 [Concomitant]
     Indication: PRODUCT USED FOR UNKNOWN INDICATION
     Route: 065
  5. CC-4047 [Suspect]
     Active Substance: POMALIDOMIDE
     Indication: RENAL CELL CARCINOMA
  6. DEXAMETHASONE. [Suspect]
     Active Substance: DEXAMETHASONE
     Route: 058
     Dates: start: 20160614, end: 20160618
  7. ECOPRIN [Concomitant]
     Indication: PRODUCT USED FOR UNKNOWN INDICATION
     Route: 065
  8. ASIVIRAL [Concomitant]
     Active Substance: ACYCLOVIR
     Indication: PRODUCT USED FOR UNKNOWN INDICATION
     Route: 065
  9. CC-4047 [Suspect]
     Active Substance: POMALIDOMIDE
     Indication: SCLERODERMA
  10. BORTEZOMIB [Suspect]
     Active Substance: BORTEZOMIB
     Route: 058
     Dates: start: 20160614, end: 20160617
  11. CC-4047 [Suspect]
     Active Substance: POMALIDOMIDE
     Indication: PLASMA CELL MYELOMA
     Route: 048
     Dates: start: 20160209, end: 20160222
  12. CC-4047 [Suspect]
     Active Substance: POMALIDOMIDE
     Indication: PROSTATE CANCER
  13. NORVASC [Concomitant]
     Active Substance: AMLODIPINE BESYLATE
     Indication: PRODUCT USED FOR UNKNOWN INDICATION
     Dosage: 800 MILLIGRAM
     Route: 041
     Dates: end: 20160627
  14. DEXAMETHASONE. [Suspect]
     Active Substance: DEXAMETHASONE
     Indication: PLASMA CELL MYELOMA
     Route: 048
     Dates: start: 20160209, end: 20160220

REACTIONS (1)
  - Gastroenteritis salmonella [Recovered/Resolved]

NARRATIVE: CASE EVENT DATE: 20160620
